FAERS Safety Report 9931339 (Version 2)
Quarter: 2014Q1

REPORT INFORMATION
  Report Type: Spontaneous
  Country: CZ (occurrence: CZ)
  Receive Date: 20140228
  Receipt Date: 20140228
  Transmission Date: 20141002
  Serious: Yes (Hospitalization, Other)
  Sender: FDA-Public Use
  Company Number: CZ-ACCORD-016129

PATIENT
  Age: 44 Year
  Sex: Female

DRUGS (3)
  1. PACLITAXEL/PACLITAXEL LIPOSOME [Suspect]
     Indication: OVARIAN CANCER
     Dosage: TOTAL 15 CYCLES- FROM APR TO DEC-06, TOTAL 8 CYCLES RECEIVED-20% AND 50% DOSE REDUCE IN 7 AND 15 CYC
  2. CARBOPLATIN [Suspect]
     Indication: OVARIAN CANCER
     Dosage: TOTAL 15 CYCLES- FROM APR TO DEC-06, TOTAL 8 CYCLES RECEIVED-20% AND 50% DOSE REDUCE IN 7 AND 15 CYC
  3. GEMCITABINE [Concomitant]
     Indication: CHEMOTHERAPY

REACTIONS (4)
  - Anaemia [Recovered/Resolved]
  - Neutropenia [Unknown]
  - Febrile neutropenia [Unknown]
  - Polyneuropathy [Unknown]
